FAERS Safety Report 14471176 (Version 1)
Quarter: 2018Q1

REPORT INFORMATION
  Report Type: Report from Study
  Country: US (occurrence: US)
  Receive Date: 20180131
  Receipt Date: 20180131
  Transmission Date: 20180509
  Serious: Yes (Hospitalization)
  Sender: FDA-Public Use
  Company Number: US-OTSUKA-2017_026006

PATIENT
  Age: 75 Year
  Sex: Male
  Weight: 74.38 kg

DRUGS (13)
  1. CABERGOLINE. [Concomitant]
     Active Substance: CABERGOLINE
     Indication: PITUITARY TUMOUR BENIGN
     Dosage: 0.25 MG, QD (DAILY)
     Route: 048
     Dates: start: 20170509
  2. LEVOTHYROXINE. [Concomitant]
     Active Substance: LEVOTHYROXINE
     Indication: HYPOTHYROIDISM
     Dosage: 1 DF, QD, DAILY
     Route: 048
     Dates: start: 20171108
  3. CYANOCOBALAMIN. [Concomitant]
     Active Substance: CYANOCOBALAMIN
     Indication: HYPOVITAMINOSIS
     Dosage: 1 DF, QD (DAILY)
     Route: 048
     Dates: start: 20170509
  4. METOPROLOL. [Concomitant]
     Active Substance: METOPROLOL
     Indication: PALPITATIONS
     Dosage: 12.5 MG, QD (DAILY)
     Route: 048
     Dates: start: 20170509
  5. OPB-111077 [Suspect]
     Active Substance: INVESTIGATIONAL PRODUCT
     Indication: ACUTE MYELOID LEUKAEMIA
     Dosage: 150 MG, QD
     Route: 048
     Dates: start: 20171108, end: 20171123
  6. DECITABINE. [Suspect]
     Active Substance: DECITABINE
     Dosage: UNK
     Route: 065
     Dates: start: 20171108, end: 20171112
  7. ACYCLOVIR. [Concomitant]
     Active Substance: ACYCLOVIR
     Indication: ANTIVIRAL PROPHYLAXIS
     Dosage: 1 DF, (1 TABLET BY MOUTH 2 TIMES A DAY)
     Route: 048
     Dates: start: 20170509
  8. BENADRYL OTC [Concomitant]
     Indication: ALLERGY PROPHYLAXIS
     Dosage: UNK, (TAKE AS DIRECTED)
     Route: 065
     Dates: start: 20170925
  9. OPB-111077 [Suspect]
     Active Substance: INVESTIGATIONAL PRODUCT
     Dosage: 200 MG, UNK
     Route: 065
  10. DECITABINE. [Suspect]
     Active Substance: DECITABINE
     Indication: ACUTE MYELOID LEUKAEMIA
     Dosage: UNK
     Route: 065
     Dates: start: 20171002, end: 20171006
  11. SYNTHROID [Concomitant]
     Active Substance: LEVOTHYROXINE SODIUM
     Indication: HYPOTHYROIDISM
     Dosage: UNK
     Route: 065
  12. FLOMAX [Concomitant]
     Active Substance: TAMSULOSIN HYDROCHLORIDE
     Indication: URINARY RETENTION
     Dosage: 1 DF, QD
     Route: 048
     Dates: start: 20170509
  13. COMPAZINE [Concomitant]
     Active Substance: PROCHLORPERAZINE MALEATE
     Indication: NAUSEA
     Dosage: 1 DF, UNK (EVERY 6 HOURS AS NEEDED)
     Route: 048
     Dates: start: 20170922

REACTIONS (12)
  - Febrile neutropenia [None]
  - Pleural effusion [None]
  - Contusion [None]
  - Cardiomegaly [None]
  - Cardiac tamponade [None]
  - Pulmonary oedema [None]
  - Atelectasis [None]
  - Pericardial effusion [Recovered/Resolved]
  - Pituitary tumour benign [None]
  - Benign prostatic hyperplasia [None]
  - Acute myeloid leukaemia recurrent [None]
  - Mitral valve incompetence [None]

NARRATIVE: CASE EVENT DATE: 20171124
